FAERS Safety Report 4599657-4 (Version None)
Quarter: 2005Q1

REPORT INFORMATION
  Report Type: 
  Country: None (occurrence: None)
  Receive Date: 20050304
  Receipt Date: 20050304
  Transmission Date: 20050727
  Serious: Yes (Death)
  Sender: FDA-Public Use
  Company Number: None

PATIENT
  Sex: Male
  Weight: 53.18 kg

DRUGS (2)
  1. GEMCITABINE 1000 MG/M2 IV OVER 30 MIN Q WK X 7 [Suspect]
     Dosage: 1000 MG/M2 IV OVER 30 MIN Q WK X 7
     Route: 042
     Dates: start: 20041004, end: 20050131
  2. GEMCITABINE 1000 MG/M2 IV OVER 30 MIN Q WK X 3 [Suspect]
     Dosage: 1000 MG/M2 IV OVER 30 MIN Q WK X 3
     Route: 042

REACTIONS (1)
  - CIRCULATORY COLLAPSE [None]
